FAERS Safety Report 14802633 (Version 2)
Quarter: 2018Q2

REPORT INFORMATION
  Report Type: Spontaneous
  Country: US (occurrence: US)
  Receive Date: 20180424
  Receipt Date: 20180517
  Transmission Date: 20180711
  Serious: No
  Sender: FDA-Public Use
  Company Number: US-GLAXOSMITHKLINE-US2018070866

PATIENT
  Sex: Female

DRUGS (2)
  1. BUSPIRONE [Concomitant]
     Active Substance: BUSPIRONE HYDROCHLORIDE
  2. FLOVENT [Suspect]
     Active Substance: FLUTICASONE PROPIONATE
     Indication: ASTHMA
     Dosage: 1 PUFF(S), PRN
     Route: 055
     Dates: start: 2015

REACTIONS (7)
  - Intentional overdose [Unknown]
  - Drug ineffective [Recovered/Resolved]
  - Intentional underdose [Unknown]
  - Product storage error [Unknown]
  - Intentional product misuse [Unknown]
  - Product quality issue [Unknown]
  - Asthma [Unknown]
